FAERS Safety Report 8061571-X (Version None)
Quarter: 2012Q1

REPORT INFORMATION
  Report Type: 
  Country: None (occurrence: None)
  Receive Date: 20120122
  Receipt Date: 20120116
  Transmission Date: 20120608
  Serious: Yes (Hospitalization)
  Sender: FDA-Public Use
  Company Number: PHHO2009JP12813

PATIENT
  Sex: Male

DRUGS (14)
  1. DOGMATYL [Concomitant]
     Indication: DEPRESSION
     Dosage: 50 MG, UNK
     Route: 048
     Dates: start: 20080718
  2. GASMOTIN [Concomitant]
     Indication: GASTRIC HYPOMOTILITY
     Dosage: 150 MG, UNK
     Route: 048
     Dates: start: 20080718
  3. SELBEX [Concomitant]
     Indication: GASTRITIS PROPHYLAXIS
     Dosage: UNK
     Dates: start: 20080718
  4. ZOLPIDEM [Concomitant]
     Indication: SLEEP DISORDER
     Dosage: 10 MG, UNK
     Route: 048
     Dates: start: 20090401
  5. PAXIL [Concomitant]
     Indication: DEPRESSION
     Dosage: 20 MG, UNK
     Route: 048
     Dates: start: 20080718
  6. RABEPRAZOLE SODIUM [Concomitant]
     Indication: GASTRIC PH DECREASED
     Dosage: 10 MG, UNK
     Route: 048
     Dates: start: 20080718
  7. GILENYA [Suspect]
     Dosage: DOSE BLINDED
     Route: 048
     Dates: start: 20091020, end: 20120116
  8. CEFOTIAM HYDROCHLORIDE [Suspect]
     Indication: PROPHYLAXIS OF NAUSEA AND VOMITING
  9. PHENYTOIN SODIUM CAP [Suspect]
     Indication: STATUS EPILEPTICUS
  10. GILENYA [Suspect]
     Indication: MULTIPLE SCLEROSIS
     Dosage: DOSE BLINDED
     Route: 048
     Dates: start: 20080806
  11. LOXONIN [Concomitant]
     Indication: BACK PAIN
     Dosage: UNK
     Dates: start: 20080718
  12. SEROQUEL [Concomitant]
     Indication: MENTAL DISORDER
     Dosage: 50 MG, UNK
     Route: 048
     Dates: start: 20090403
  13. GILENYA [Suspect]
     Dosage: DOSE BLINDED
     Route: 048
     Dates: start: 20090205, end: 20091015
  14. PURSENNID [Concomitant]
     Indication: CONSTIPATION
     Dosage: 24 MG, UNK
     Route: 048
     Dates: start: 20090130

REACTIONS (17)
  - STATUS EPILEPTICUS [None]
  - URINARY TRACT INFECTION [None]
  - RESTLESSNESS [None]
  - MUSCLE RIGIDITY [None]
  - DYSURIA [None]
  - CONVULSIONS LOCAL [None]
  - BACTERIAL INFECTION [None]
  - PARTIAL SEIZURES [None]
  - ALTERED STATE OF CONSCIOUSNESS [None]
  - MALAISE [None]
  - LIVER DISORDER [None]
  - WHITE BLOOD CELL COUNT INCREASED [None]
  - PSEUDOMONAS INFECTION [None]
  - CONVULSION [None]
  - PYREXIA [None]
  - C-REACTIVE PROTEIN INCREASED [None]
  - PNEUMONIA ASPIRATION [None]
